FAERS Safety Report 12645090 (Version 6)
Quarter: 2017Q3

REPORT INFORMATION
  Report Type: Spontaneous
  Country: US (occurrence: US)
  Receive Date: 20160811
  Receipt Date: 20170929
  Transmission Date: 20171127
  Serious: Yes (Congenital Anomaly, Other)
  Sender: FDA-Public Use
  Company Number: PHHY2015US128623

PATIENT
  Sex: Female

DRUGS (3)
  1. ZOFRAN ODT [Suspect]
     Active Substance: ONDANSETRON HYDROCHLORIDE
     Indication: FOETAL EXPOSURE DURING PREGNANCY
     Route: 064
  2. ZOFRAN [Suspect]
     Active Substance: ONDANSETRON HYDROCHLORIDE
     Indication: FOETAL EXPOSURE DURING PREGNANCY
     Route: 064
  3. ZOFRAN [Suspect]
     Active Substance: ONDANSETRON HYDROCHLORIDE
     Indication: FOETAL EXPOSURE DURING PREGNANCY
     Route: 064

REACTIONS (27)
  - Coarctation of the aorta [Unknown]
  - Pyrexia [Unknown]
  - Heart disease congenital [Unknown]
  - Left-to-right cardiac shunt [Unknown]
  - Cardiomegaly [Unknown]
  - Vomiting [Unknown]
  - Double outlet right ventricle [Unknown]
  - Hypertrophic cardiomyopathy [Unknown]
  - Pulmonary valve incompetence [Unknown]
  - Cough [Unknown]
  - Respiratory distress [Unknown]
  - Gastrooesophageal reflux disease [Unknown]
  - Patent ductus arteriosus [Unknown]
  - Laevocardia [Unknown]
  - Heart valve incompetence [Unknown]
  - Tricuspid valve incompetence [Unknown]
  - Neonatal tachypnoea [Unknown]
  - Cardiac septal defect [Unknown]
  - Foetal exposure during pregnancy [Unknown]
  - Mitral valve incompetence [Unknown]
  - Anxiety [Unknown]
  - Congenital coronary artery malformation [Unknown]
  - Atrial septal defect [Unknown]
  - Ventricular septal defect [Unknown]
  - Premature baby [Unknown]
  - Pulmonary oedema neonatal [Unknown]
  - Urinary tract infection [Unknown]
